FAERS Safety Report 9120055 (Version 1)
Quarter: 2013Q1

REPORT INFORMATION
  Report Type: Spontaneous
  Country: GB (occurrence: GB)
  Receive Date: 20130226
  Receipt Date: 20130226
  Transmission Date: 20140127
  Serious: Yes (Hospitalization, Other)
  Sender: FDA-Public Use
  Company Number: PHFR2013GB001357

PATIENT
  Age: 26 Year
  Sex: Female

DRUGS (1)
  1. TOBI [Suspect]
     Indication: LUNG INFECTION
     Dosage: UNK UKN, UNK
     Dates: end: 201211

REACTIONS (1)
  - Pneumothorax [Recovered/Resolved]
